FAERS Safety Report 5005056-3 (Version None)
Quarter: 2006Q2

REPORT INFORMATION
  Report Type: 
  Country: None (occurrence: None)
  Receive Date: 20060518
  Receipt Date: 20060331
  Transmission Date: 20061013
  Serious: Yes (Hospitalization, Other)
  Sender: FDA-Public Use
  Company Number: PHNU2006DE01562

PATIENT
  Age: 51 Year
  Sex: Female
  Weight: 90 kg

DRUGS (1)
  1. ESTRADOT [Suspect]
     Indication: MENOPAUSAL DISORDER
     Dosage: UNK, UNK
     Route: 062
     Dates: start: 20060109, end: 20060410

REACTIONS (6)
  - ABDOMINAL PAIN [None]
  - EPIPLOIC APPENDAGITIS [None]
  - HAEMORRHAGE [None]
  - LAPAROTOMY [None]
  - PERITONITIS [None]
  - VASCULAR OCCLUSION [None]
